FAERS Safety Report 14180478 (Version 1)
Quarter: 2017Q4

REPORT INFORMATION
  Report Type: Spontaneous
  Country: IT (occurrence: IT)
  Receive Date: 20171111
  Receipt Date: 20171111
  Transmission Date: 20180321
  Serious: Yes (Life-Threatening)
  Sender: FDA-Public Use
  Company Number: IT-TEVA-822857ACC

PATIENT
  Age: 65 Year
  Sex: Male

DRUGS (1)
  1. CLOPIDOGREL ACTAVIS - 75MG COMPRESSE RIVESTITE CON FILM [Suspect]
     Active Substance: CLOPIDOGREL BISULFATE
     Indication: HYPERTENSIVE HEART DISEASE
     Dosage: 75 MILLIGRAM DAILY;
     Route: 048

REACTIONS (4)
  - Dyspepsia [Unknown]
  - Arthralgia [Unknown]
  - Fatigue [Unknown]
  - Presyncope [Unknown]

NARRATIVE: CASE EVENT DATE: 20170301
